FAERS Safety Report 24555009 (Version 1)
Quarter: 2024Q4

REPORT INFORMATION
  Report Type: Spontaneous
  Country: JP (occurrence: JP)
  Receive Date: 20241028
  Receipt Date: 20241028
  Transmission Date: 20250114
  Serious: Yes (Other)
  Sender: ABBVIE
  Company Number: JP-ABBVIE-5976576

PATIENT
  Age: 85 Year
  Sex: Male

DRUGS (2)
  1. VENCLEXTA [Suspect]
     Active Substance: VENETOCLAX
     Indication: Acute myeloid leukaemia
     Route: 048
  2. AZACITIDINE [Concomitant]
     Active Substance: AZACITIDINE
     Indication: Acute myeloid leukaemia

REACTIONS (9)
  - Platelet count decreased [Recovered/Resolved]
  - Cholecystitis acute [Unknown]
  - Clostridium difficile infection [Unknown]
  - Reticulocyte count increased [Unknown]
  - Cerebral haemorrhage [Unknown]
  - Stenotrophomonas bacteraemia [Unknown]
  - Cholelithiasis [Unknown]
  - White blood cell count decreased [Recovering/Resolving]
  - Reticulocyte count decreased [Unknown]
